FAERS Safety Report 17125471 (Version 2)
Quarter: 2020Q1

REPORT INFORMATION
  Report Type: Spontaneous
  Country: IT (occurrence: IT)
  Receive Date: 20191207
  Receipt Date: 20200106
  Transmission Date: 20200409
  Serious: Yes (Hospitalization)
  Sender: FDA-Public Use
  Company Number: IT-ACCORD-164334

PATIENT
  Age: 76 Year
  Sex: Female

DRUGS (11)
  1. SIMBATRIX [Concomitant]
  2. VASEXTEN [Concomitant]
     Active Substance: BARNIDIPINE HYDROCHLORIDE
  3. VALPRESSION [Concomitant]
     Active Substance: VALSARTAN
  4. BENDAMUSTINE/BENDAMUSTINE HYDROCHLORIDE [Suspect]
     Active Substance: BENDAMUSTINE HYDROCHLORIDE
     Indication: B-CELL LYMPHOMA
     Route: 042
     Dates: start: 20190228, end: 20190724
  5. ZELITREX [Concomitant]
     Active Substance: VALACYCLOVIR HYDROCHLORIDE
  6. CARDIOASPIRIN [Concomitant]
     Active Substance: ASPIRIN
  7. INSULIN [Concomitant]
     Active Substance: INSULIN NOS
  8. PAROXETINE. [Concomitant]
     Active Substance: PAROXETINE
  9. RITUXIMAB. [Suspect]
     Active Substance: RITUXIMAB
     Indication: B-CELL LYMPHOMA
     Route: 042
     Dates: start: 20190309, end: 20190923
  10. BACTRIM [Concomitant]
     Active Substance: SULFAMETHOXAZOLE\TRIMETHOPRIM
  11. BISOPROLOL [Concomitant]
     Active Substance: BISOPROLOL

REACTIONS (4)
  - Bradyphrenia [Unknown]
  - Movement disorder [Unknown]
  - JC polyomavirus test positive [Unknown]
  - Confusional state [Unknown]

NARRATIVE: CASE EVENT DATE: 20190927
